FAERS Safety Report 6694090-3 (Version None)
Quarter: 2010Q2

REPORT INFORMATION
  Report Type: 
  Country: None (occurrence: None)
  Receive Date: 20100423
  Receipt Date: 20100414
  Transmission Date: 20101027
  Serious: Yes (Hospitalization)
  Sender: FDA-Public Use
  Company Number: JP-ROCHE-655235

PATIENT
  Sex: Male
  Weight: 71 kg

DRUGS (29)
  1. ACTEMRA [Suspect]
     Indication: CASTLEMAN'S DISEASE
     Route: 041
     Dates: start: 20060426, end: 20060705
  2. ACTEMRA [Suspect]
     Route: 041
     Dates: start: 20060719, end: 20061108
  3. ACTEMRA [Suspect]
     Route: 041
     Dates: start: 20061122, end: 20061122
  4. ACTEMRA [Suspect]
     Route: 041
     Dates: start: 20061213, end: 20061213
  5. ACTEMRA [Suspect]
     Route: 041
     Dates: start: 20061227, end: 20061227
  6. ACTEMRA [Suspect]
     Route: 041
     Dates: start: 20070117, end: 20070228
  7. ACTEMRA [Suspect]
     Route: 041
     Dates: start: 20070328, end: 20070328
  8. ACTEMRA [Suspect]
     Route: 041
     Dates: start: 20070418, end: 20070822
  9. ACTEMRA [Suspect]
     Route: 041
     Dates: start: 20070919, end: 20071017
  10. ACTEMRA [Suspect]
     Route: 041
     Dates: start: 20071107, end: 20080423
  11. ACTEMRA [Suspect]
     Route: 041
     Dates: start: 20080702, end: 20080723
  12. ACTEMRA [Suspect]
     Route: 041
     Dates: start: 20080820, end: 20080820
  13. ACTEMRA [Suspect]
     Route: 041
     Dates: start: 20080910, end: 20081224
  14. ACTEMRA [Suspect]
     Route: 041
     Dates: start: 20090115, end: 20090115
  15. ACTEMRA [Suspect]
     Route: 041
     Dates: start: 20090129, end: 20090129
  16. ACTEMRA [Suspect]
     Route: 041
     Dates: start: 20090225
  17. ACTEMRA [Suspect]
     Route: 041
     Dates: start: 20090101, end: 20090904
  18. PREDONINE [Concomitant]
     Route: 048
     Dates: start: 20020327
  19. PREDONINE [Concomitant]
     Route: 048
     Dates: end: 20060103
  20. PREDONINE [Concomitant]
     Route: 048
     Dates: start: 20060201, end: 20060927
  21. PREDONINE [Concomitant]
     Route: 048
     Dates: start: 20060928, end: 20070207
  22. PREDONINE [Concomitant]
     Route: 048
     Dates: start: 20070208, end: 20070711
  23. PREDONINE [Concomitant]
     Route: 048
     Dates: start: 20070712, end: 20080610
  24. PREDONINE [Concomitant]
     Route: 048
     Dates: start: 20080611
  25. ALENDRONATE SODIUM [Concomitant]
     Route: 048
     Dates: end: 20071017
  26. ALENDRONATE SODIUM [Concomitant]
     Dosage: STRENGTH REPORTED AS 35MG
     Route: 048
     Dates: start: 20071018
  27. ONEALFA [Concomitant]
     Dosage: FORM:ORAL FORMULATION (NOT OTHERWISE SPECIFIED). UNITS REPORTED AS MCG
     Route: 048
  28. SELBEX [Concomitant]
     Dosage: FORM:ORAL FORMULATION (NOT OTHERWISE SPECIFIED)
     Route: 048
  29. ASPIRIN [Concomitant]
     Dosage: FORM REPORTED AS ENTERIC
     Route: 048
     Dates: start: 20090311

REACTIONS (5)
  - ABDOMINAL PAIN UPPER [None]
  - HODGKIN'S DISEASE [None]
  - NASOPHARYNGITIS [None]
  - PROTEIN URINE PRESENT [None]
  - PRURITUS [None]
